FAERS Safety Report 7830361-2 (Version None)
Quarter: 2011Q4

REPORT INFORMATION
  Report Type: 
  Country: None (occurrence: None)
  Receive Date: 20111021
  Receipt Date: 20111019
  Transmission Date: 20120403
  Serious: Yes (Other)
  Sender: FDA-Public Use
  Company Number: US-PFIZER INC-2011252625

PATIENT
  Sex: Female

DRUGS (2)
  1. TIKOSYN [Suspect]
     Indication: ATRIAL FIBRILLATION
     Dosage: 500 UG, 2X/DAY
     Route: 048
     Dates: start: 20100727, end: 20110901
  2. TIKOSYN [Suspect]
     Dosage: 250 UG, 2X/DAY
     Route: 048
     Dates: start: 20110901

REACTIONS (3)
  - CARDIAC ABLATION [None]
  - MIDDLE INSOMNIA [None]
  - PRURITUS [None]
